FAERS Safety Report 8811683 (Version 1)
Quarter: 2012Q4

REPORT INFORMATION
  Report Type: 
  Country: CN (occurrence: CN)
  Receive Date: 20120927
  Receipt Date: 20120927
  Transmission Date: 20130627
  Serious: Yes (Death, Other)
  Sender: FDA-Public Use
  Company Number: CN-SANOFI-AVENTIS-2012SA069688

PATIENT
  Age: 51 Year
  Sex: Female
  Weight: 45 kg

DRUGS (4)
  1. STILNOX [Suspect]
     Indication: SLEEP DISORDER
     Route: 048
     Dates: start: 20110313, end: 20110317
  2. MERISLON [Concomitant]
     Indication: DIZZINESS
     Route: 048
     Dates: start: 20110313, end: 20110317
  3. EFFEXOR [Concomitant]
     Indication: DEPRESSION
     Route: 048
     Dates: start: 20110313, end: 20110317
  4. EFFEXOR [Concomitant]
     Indication: MENTAL STATE ABNORMAL
     Route: 048
     Dates: start: 20110313, end: 20110317

REACTIONS (3)
  - Multi-organ failure [Fatal]
  - Coma [Not Recovered/Not Resolved]
  - Altered state of consciousness [Not Recovered/Not Resolved]
